FAERS Safety Report 9591779 (Version 2)
Quarter: 2013Q4

REPORT INFORMATION
  Report Type: Spontaneous
  Country: US (occurrence: US)
  Receive Date: 20131004
  Receipt Date: 20131004
  Transmission Date: 20140711
  Serious: No
  Sender: FDA-Public Use
  Company Number: US-AMGEN-USASP2012082606

PATIENT
  Age: 59 Year
  Sex: Female
  Weight: 73.47 kg

DRUGS (8)
  1. ENBREL [Suspect]
     Indication: PRODUCT USED FOR UNKNOWN INDICATION
     Dosage: 50 MG/ML, QWK
     Route: 058
     Dates: start: 20120524
  2. RESTASIS [Concomitant]
     Dosage: 0.05 %, UNK
  3. PREMARIN [Concomitant]
     Dosage: 0.45 MG, UNK
  4. PREDNISONE [Concomitant]
     Dosage: 1 MG, UNK
  5. LEFLUNOMIDE [Concomitant]
     Dosage: 10 MG, UNK
  6. PRILOSEC                           /00661201/ [Concomitant]
     Dosage: 20 MG, UNK
  7. ADVIL                              /00109201/ [Concomitant]
     Dosage: 200 MG, UNK
  8. OMEGA 3                            /01334101/ [Concomitant]
     Dosage: 1000 MG, UNK

REACTIONS (4)
  - Nasopharyngitis [Recovering/Resolving]
  - Injection site reaction [Unknown]
  - Injection site erythema [Unknown]
  - Injection site pain [Unknown]
